FAERS Safety Report 5589583-6 (Version None)
Quarter: 2008Q1

REPORT INFORMATION
  Report Type: 
  Country: None (occurrence: None)
  Receive Date: 20080114
  Receipt Date: 20080108
  Transmission Date: 20080703
  Serious: Yes (Other)
  Sender: FDA-Public Use
  Company Number: US-ALLERGAN-0714018US

PATIENT
  Sex: Female
  Weight: 63.492 kg

DRUGS (7)
  1. BOTOX COSMETIC [Suspect]
     Indication: SKIN WRINKLING
     Dosage: 20 UNITS, SINGLE
     Route: 030
     Dates: start: 20071107, end: 20071107
  2. BOTOX COSMETIC [Suspect]
  3. RESTYLANE [Suspect]
     Indication: SKIN WRINKLING
  4. VALIUM [Concomitant]
     Indication: MUSCLE SPASMS
     Route: 048
  5. VITAMINS [Concomitant]
  6. BUSPAR [Concomitant]
     Dosage: UNK, BID
     Dates: start: 20070101, end: 20070601
  7. RELAFEN [Concomitant]
     Indication: BACK INJURY

REACTIONS (23)
  - BLISTER [None]
  - DERMATITIS CONTACT [None]
  - DRY SKIN [None]
  - DYSPNOEA [None]
  - EYELID OEDEMA [None]
  - EYELIDS PRURITUS [None]
  - FLUID RETENTION [None]
  - HYPERSENSITIVITY [None]
  - HYPERTENSION [None]
  - INJECTION SITE SWELLING [None]
  - INSOMNIA [None]
  - PRURITUS [None]
  - RASH [None]
  - RASH PUSTULAR [None]
  - SENSORY DISTURBANCE [None]
  - SKIN DISORDER [None]
  - SKIN EXFOLIATION [None]
  - SKIN FISSURES [None]
  - SKIN INFLAMMATION [None]
  - SWELLING [None]
  - URINE ODOUR ABNORMAL [None]
  - URTICARIA [None]
  - WRONG TECHNIQUE IN DRUG USAGE PROCESS [None]
